FAERS Safety Report 16202016 (Version 1)
Quarter: 2019Q2

REPORT INFORMATION
  Report Type: Spontaneous
  Country: BH (occurrence: BH)
  Receive Date: 20190416
  Receipt Date: 20190416
  Transmission Date: 20190711
  Serious: Yes (Hospitalization, Other)
  Sender: FDA-Public Use
  Company Number: BH-LUPIN PHARMACEUTICALS INC.-2019-02312

PATIENT
  Age: 18 Year
  Sex: Female

DRUGS (8)
  1. BUPROPION HYDROCHLORIDE EXTENDED-RELEASE TABLETS [Suspect]
     Active Substance: BUPROPION HYDROCHLORIDE
     Indication: APATHY
     Dosage: 150 MILLIGRAM, QD
     Route: 065
  2. FLUOXETINE [Suspect]
     Active Substance: FLUOXETINE HYDROCHLORIDE
     Indication: DEPRESSION
     Dosage: 20 MILLIGRAM, QD
     Route: 065
     Dates: start: 201710
  3. ESCITALOPRAM [Suspect]
     Active Substance: ESCITALOPRAM OXALATE
     Dosage: 20 MILLIGRAM, QD
     Route: 065
  4. ESCITALOPRAM [Suspect]
     Active Substance: ESCITALOPRAM OXALATE
     Indication: MISOPHONIA
     Dosage: UNK
     Route: 065
  5. MIRTAZAPINE. [Suspect]
     Active Substance: MIRTAZAPINE
     Indication: MISOPHONIA
     Dosage: 15 MILLIGRAM, QD
     Route: 065
  6. BUPROPION HYDROCHLORIDE EXTENDED-RELEASE TABLETS [Suspect]
     Active Substance: BUPROPION HYDROCHLORIDE
     Indication: MISOPHONIA
  7. FLUOXETINE [Suspect]
     Active Substance: FLUOXETINE HYDROCHLORIDE
     Indication: MISOPHONIA
     Dosage: 40 MILLIGRAM, QD, DOSE INCREASED
     Route: 065
  8. BUPROPION HYDROCHLORIDE EXTENDED-RELEASE TABLETS [Suspect]
     Active Substance: BUPROPION HYDROCHLORIDE
     Indication: DEPRESSION
     Dosage: 30 DOSAGE FORM
     Route: 065
     Dates: start: 201712

REACTIONS (7)
  - Suicide attempt [Unknown]
  - Bulimia nervosa [Recovered/Resolved]
  - Weight increased [Unknown]
  - Paradoxical drug reaction [Unknown]
  - Intentional product misuse [Unknown]
  - Overdose [Unknown]
  - Impulsive behaviour [Unknown]
